FAERS Safety Report 9174236 (Version 1)
Quarter: 2013Q1

REPORT INFORMATION
  Report Type: Spontaneous
  Country: US (occurrence: US)
  Receive Date: 20130320
  Receipt Date: 20130320
  Transmission Date: 20140127
  Serious: Yes (Hospitalization)
  Sender: FDA-Public Use
  Company Number: US-SHIRE-ALL1-2013-01485

PATIENT
  Sex: Female
  Weight: 47.62 kg

DRUGS (6)
  1. 433 (CARBAMAZEPINE) [Suspect]
     Indication: TRIGEMINAL NEURALGIA
     Dosage: 200 MG, 3X/DAY:TID
     Route: 048
     Dates: end: 201302
  2. 433 (CARBAMAZEPINE) [Suspect]
     Dosage: 200 MG, 2X/DAY:BID
     Route: 048
     Dates: start: 201302, end: 201302
  3. 433 (CARBAMAZEPINE) [Suspect]
     Dosage: 200 MG, 1X/DAY:QD
     Route: 048
     Dates: start: 201302, end: 201302
  4. 433 (CARBAMAZEPINE) [Suspect]
     Dosage: 100 MG, 1X/DAY:QD
     Route: 048
     Dates: start: 2013, end: 2013
  5. TRAZODONE [Concomitant]
     Indication: DEPRESSION
     Dosage: 10 MG, 2X/DAY:BID
     Route: 048
     Dates: start: 2006
  6. CLONAZEPAM [Concomitant]
     Indication: DEPRESSION
     Dosage: 0.5 MG, AS REQ^D (3XDAY)
     Route: 048
     Dates: start: 2006

REACTIONS (8)
  - Pain [Recovered/Resolved]
  - Eating disorder [Recovered/Resolved]
  - Aphasia [Recovered/Resolved]
  - Trismus [Recovered/Resolved]
  - Vomiting [Recovered/Resolved]
  - Drug ineffective [Recovered/Resolved]
  - Drug resistance [Recovered/Resolved]
  - Drug prescribing error [Recovered/Resolved]
